FAERS Safety Report 15048411 (Version 1)
Quarter: 2018Q2

REPORT INFORMATION
  Report Type: Spontaneous
  Country: US (occurrence: US)
  Receive Date: 20180622
  Receipt Date: 20180622
  Transmission Date: 20180711
  Serious: No
  Sender: FDA-Public Use
  Company Number: US-HORIZON-VIM-0997-2018

PATIENT
  Age: 62 Year
  Sex: Female

DRUGS (4)
  1. GLUCOSAMINE [Concomitant]
     Active Substance: GLUCOSAMINE
  2. VIMOVO [Suspect]
     Active Substance: ESOMEPRAZOLE MAGNESIUM\NAPROXEN
     Indication: ARTHRITIS
     Dosage: STARTED 1 TABLET BID THEN USED 1 TABLET QD
     Dates: start: 20180401, end: 20180516
  3. CALCIUM [Concomitant]
     Active Substance: CALCIUM
  4. LOVASTATIN. [Concomitant]
     Active Substance: LOVASTATIN

REACTIONS (2)
  - Diarrhoea [Not Recovered/Not Resolved]
  - Intentional product misuse [Unknown]

NARRATIVE: CASE EVENT DATE: 201804
